FAERS Safety Report 16485719 (Version 1)
Quarter: 2019Q2

REPORT INFORMATION
  Report Type: Spontaneous
  Country: US (occurrence: US)
  Receive Date: 20190517
  Receipt Date: 20190517
  Transmission Date: 20190711
  Serious: Yes (Life-Threatening, Hospitalization)
  Sender: FDA-Public Use
  Company Number: None

PATIENT
  Age: 20 Year
  Sex: Female
  Weight: 59.42 kg

DRUGS (2)
  1. HCG 37.5MG [Suspect]
     Active Substance: GONADOTROPHIN, CHORIONIC
     Route: 048
     Dates: start: 20190508, end: 20190514
  2. PHENTERMINE. [Suspect]
     Active Substance: PHENTERMINE

REACTIONS (8)
  - Angina pectoris [None]
  - Heart rate increased [None]
  - Fatigue [None]
  - Dizziness [None]
  - Heart rate irregular [None]
  - Panic reaction [None]
  - Dyspnoea [None]
  - Chest pain [None]

NARRATIVE: CASE EVENT DATE: 20190514
